FAERS Safety Report 7079993-2 (Version None)
Quarter: 2010Q4

REPORT INFORMATION
  Report Type: 
  Country: None (occurrence: None)
  Receive Date: 20101102
  Receipt Date: 20100122
  Transmission Date: 20110411
  Serious: No
  Sender: FDA-Public Use
  Company Number: US-ABBOTT-10P-163-0622407-00

PATIENT
  Age: 61 Year
  Sex: Female

DRUGS (3)
  1. BIAXIN [Suspect]
     Indication: ABSCESS BACTERIAL
     Dosage: EVENTS WOULD COME AND GO WITH DRUG
     Route: 048
  2. SYNTHROID [Concomitant]
     Indication: PRODUCT USED FOR UNKNOWN INDICATION
  3. OXYCODONE HCL [Concomitant]
     Indication: PAIN

REACTIONS (4)
  - BURNING SENSATION [None]
  - CHEST DISCOMFORT [None]
  - PARAESTHESIA [None]
  - PERIPHERAL COLDNESS [None]
